FAERS Safety Report 6267855-X (Version None)
Quarter: 2009Q3

REPORT INFORMATION
  Report Type: 
  Country: None (occurrence: None)
  Receive Date: 20090714
  Receipt Date: 20090708
  Transmission Date: 20100115
  Serious: Yes (Death, Other)
  Sender: FDA-Public Use
  Company Number: HQWYE008417JUL06

PATIENT
  Sex: Female

DRUGS (6)
  1. PREMARIN [Suspect]
     Indication: MENOPAUSAL SYMPTOMS
  2. PROGESTERONE [Suspect]
  3. ESTRATEST [Suspect]
     Indication: MENOPAUSAL SYMPTOMS
  4. DEPO-ESTRADIOL [Suspect]
  5. PROVERA [Suspect]
     Indication: MENOPAUSAL SYMPTOMS
  6. ESTROGENS [Suspect]
     Indication: MENOPAUSAL SYMPTOMS

REACTIONS (1)
  - OVARIAN CANCER [None]
